FAERS Safety Report 18906903 (Version 1)
Quarter: 2021Q1

REPORT INFORMATION
  Report Type: Spontaneous
  Country: US (occurrence: US)
  Receive Date: 20210218
  Receipt Date: 20210218
  Transmission Date: 20210420
  Serious: No
  Sender: FDA-Public Use
  Company Number: US-JNJFOC-20210213993

PATIENT
  Sex: Female

DRUGS (2)
  1. ZYRTEC [Suspect]
     Active Substance: CETIRIZINE HYDROCHLORIDE
     Dosage: 1 A DAY THEN ENDED 4  TABLETS A DAY ? DATE OD LAST ADMIN: /JAN/2021
     Route: 048
     Dates: start: 202101
  2. ZYRTEC [Suspect]
     Active Substance: CETIRIZINE HYDROCHLORIDE
     Indication: HYPERSENSITIVITY
     Dosage: 1 A DAY THEN ENDED 4  TABLETS A DAY ? DATE OF LAST ADMIN: /JAN/2021
     Route: 048
     Dates: start: 202101

REACTIONS (2)
  - Therapeutic product effect incomplete [Unknown]
  - Overdose [Unknown]

NARRATIVE: CASE EVENT DATE: 202101
